FAERS Safety Report 5895647-X (Version None)
Quarter: 2008Q3

REPORT INFORMATION
  Report Type: 
  Country: None (occurrence: None)
  Receive Date: 20080828
  Receipt Date: 20080630
  Transmission Date: 20090109
  Serious: Yes (Other)
  Sender: FDA-Public Use
  Company Number: 171906USA

PATIENT
  Age: 45 Year
  Sex: Female
  Weight: 63.05 kg

DRUGS (4)
  1. CARBAMAZEPINE [Suspect]
     Indication: CONVULSION
     Dosage: 800 MG (200 MG,4 IN 1 D),ORAL
     Route: 048
     Dates: start: 20080516, end: 20080523
  2. SIMVASTATIN [Concomitant]
  3. CARBAMAZEPINE [Concomitant]
  4. ACETYLSALICYLIC ACID [Concomitant]

REACTIONS (3)
  - DRUG INEFFECTIVE [None]
  - GRAND MAL CONVULSION [None]
  - PETIT MAL EPILEPSY [None]
